FAERS Safety Report 12416851 (Version 1)
Quarter: 2016Q2

REPORT INFORMATION
  Report Type: Spontaneous
  Country: JP (occurrence: JP)
  Receive Date: 20160530
  Receipt Date: 20160530
  Transmission Date: 20160815
  Serious: Yes (Other)
  Sender: FDA-Public Use
  Company Number: JP-PFIZER INC-2016270788

PATIENT
  Age: 70 Year
  Sex: Male
  Weight: 48.5 kg

DRUGS (13)
  1. EFIENT [Concomitant]
     Active Substance: PRASUGREL HYDROCHLORIDE
  2. CEFTRIAXONE PFIZER [Suspect]
     Active Substance: CEFTRIAXONE
     Indication: PNEUMONIA
     Dosage: 1 G, SINGLE
     Route: 041
     Dates: start: 20160511, end: 20160511
  3. DAIKENCHUTO [Concomitant]
     Active Substance: HERBALS
  4. CARVEDILOL. [Concomitant]
     Active Substance: CARVEDILOL
  5. CEFTRIAXONE PFIZER [Suspect]
     Active Substance: CEFTRIAXONE
     Dosage: 1 G, SINGLE
     Route: 041
     Dates: start: 20160517, end: 20160517
  6. BIOFERMIN [Concomitant]
     Active Substance: BACILLUS SUBTILIS\LACTOBACILLUS ACIDOPHILUS\STREPTOCOCCUS FAECAIS
  7. CEFTRIAXONE PFIZER [Suspect]
     Active Substance: CEFTRIAXONE
     Indication: MENINGITIS BACTERIAL
     Dosage: 2 G, 2X/DAY
     Route: 041
     Dates: start: 20160513, end: 20160516
  8. LIVALO [Concomitant]
     Active Substance: PITAVASTATIN CALCIUM
  9. LANSOPRAZOLE. [Concomitant]
     Active Substance: LANSOPRAZOLE
  10. VICCILLIN [Concomitant]
     Active Substance: AMPICILLIN
  11. BAYASPIRIN [Concomitant]
     Active Substance: ASPIRIN
  12. VANCOMYCIN [Concomitant]
     Active Substance: VANCOMYCIN
  13. NOREPINEPHRINE [Concomitant]
     Active Substance: NOREPINEPHRINE\NOREPINEPHRINE BITARTRATE

REACTIONS (3)
  - Cholelithiasis [Recovering/Resolving]
  - Condition aggravated [Recovering/Resolving]
  - Jaundice cholestatic [Recovering/Resolving]

NARRATIVE: CASE EVENT DATE: 20160513
